FAERS Safety Report 18812713 (Version 1)
Quarter: 2021Q1

REPORT INFORMATION
  Report Type: Spontaneous
  Country: US (occurrence: US)
  Receive Date: 20210131
  Receipt Date: 20210131
  Transmission Date: 20210419
  Serious: No
  Sender: FDA-Public Use
  Company Number: US-TEVA-2021-US-1870396

PATIENT
  Sex: Female

DRUGS (2)
  1. TREPROSTINIL INJECTION [Suspect]
     Active Substance: TREPROSTINIL
     Indication: IDIOPATHIC PULMONARY FIBROSIS
  2. TREPROSTINIL INJECTION [Suspect]
     Active Substance: TREPROSTINIL
     Indication: PULMONARY ARTERIAL HYPERTENSION
     Dosage: 14 NG/MG/MIN CONTINUOUS
     Route: 042
     Dates: start: 202011

REACTIONS (3)
  - Oedema peripheral [Unknown]
  - Drug ineffective [Unknown]
  - Diarrhoea [Unknown]
